FAERS Safety Report 14919788 (Version 2)
Quarter: 2019Q2

REPORT INFORMATION
  Report Type: Spontaneous
  Country: US (occurrence: US)
  Receive Date: 20180521
  Receipt Date: 20190521
  Transmission Date: 20190711
  Serious: No
  Sender: FDA-Public Use
  Company Number: US-NOVOPROD-574013

PATIENT
  Age: 79 Year
  Sex: Female

DRUGS (1)
  1. LOPREEZA [Suspect]
     Active Substance: ESTRADIOL\NORETHINDRONE ACETATE
     Indication: VULVOVAGINAL DRYNESS
     Dosage: UNK
     Route: 048
     Dates: end: 201710

REACTIONS (2)
  - Dry mouth [Not Recovered/Not Resolved]
  - Night sweats [Not Recovered/Not Resolved]
